FAERS Safety Report 8952274 (Version 4)
Quarter: 2014Q3

REPORT INFORMATION
  Report Type: Report from Study
  Country: US (occurrence: US)
  Receive Date: 20121205
  Receipt Date: 20140828
  Transmission Date: 20150326
  Serious: Yes (Hospitalization)
  Sender: FDA-Public Use
  Company Number: US-009507513-1211USA011531

PATIENT
  Age: 64 Year
  Sex: Female
  Weight: 59 kg

DRUGS (25)
  1. STUDY DRUG (UNSPECIFIED) [Suspect]
     Active Substance: UNSPECIFIED INGREDIENT
     Indication: GLIOBLASTOMA
     Dosage: 0.8 UNK, UNK
     Dates: start: 20120703, end: 20120912
  2. PANTOPRAZOLE [Concomitant]
     Active Substance: PANTOPRAZOLE SODIUM
  3. CITALOPRAM [Concomitant]
     Active Substance: CITALOPRAM HYDROBROMIDE
     Indication: DEPRESSION
  4. PHENYTOIN. [Concomitant]
     Active Substance: PHENYTOIN
  5. HALOPERIDOL. [Concomitant]
     Active Substance: HALOPERIDOL
  6. CEFTRIAXONE SODIUM. [Concomitant]
     Active Substance: CEFTRIAXONE SODIUM
  7. VANCOMYCIN [Concomitant]
     Active Substance: VANCOMYCIN
     Indication: ENCEPHALOPATHY
  8. CODEINE [Concomitant]
     Active Substance: CODEINE
  9. ONDANSETRON [Concomitant]
     Active Substance: ONDANSETRON
  10. TEMOZOLOMIDE [Suspect]
     Active Substance: TEMOZOLOMIDE
     Indication: GLIOBLASTOMA
     Dosage: 320 MG, DAYS 1-5 OF REPEATED 28 DAY CYCLES
     Route: 048
     Dates: start: 20120919, end: 20121110
  11. ENOXAPARIN SODIUM. [Concomitant]
     Active Substance: ENOXAPARIN SODIUM
  12. LEVOTHYROXINE SODIUM. [Concomitant]
     Active Substance: LEVOTHYROXINE SODIUM
  13. PREDNISONE. [Concomitant]
     Active Substance: PREDNISONE
  14. FLUCONAZOLE. [Concomitant]
     Active Substance: FLUCONAZOLE
  15. CLINDAMYCIN [Concomitant]
     Active Substance: CLINDAMYCIN\CLINDAMYCIN PHOSPHATE
  16. ALPRAZOLAM. [Concomitant]
     Active Substance: ALPRAZOLAM
     Indication: DEPRESSION
  17. CELECOXIB. [Concomitant]
     Active Substance: CELECOXIB
  18. ACYCLOVIR. [Concomitant]
     Active Substance: ACYCLOVIR
     Indication: ENCEPHALOPATHY
  19. HEPARIN [Concomitant]
     Active Substance: HEPARIN SODIUM
  20. SODIUM CHLORIDE. [Concomitant]
     Active Substance: SODIUM CHLORIDE
  21. ACETAMINOPHEN. [Concomitant]
     Active Substance: ACETAMINOPHEN
  22. GABAPENTIN. [Concomitant]
     Active Substance: GABAPENTIN
  23. LEVETIRACETAM. [Concomitant]
     Active Substance: LEVETIRACETAM
  24. ESCITALOPRAM OXALATE. [Suspect]
     Active Substance: ESCITALOPRAM OXALATE
     Indication: DEPRESSION
  25. NYSTATIN. [Concomitant]
     Active Substance: NYSTATIN

REACTIONS (1)
  - Urosepsis [Recovered/Resolved]

NARRATIVE: CASE EVENT DATE: 20121111
